FAERS Safety Report 21550055 (Version 11)
Quarter: 2023Q2

REPORT INFORMATION
  Report Type: Spontaneous
  Country: IN (occurrence: IN)
  Receive Date: 20221103
  Receipt Date: 20230529
  Transmission Date: 20230721
  Serious: Yes (Other)
  Sender: FDA-Public Use
  Company Number: IN-PFIZER INC-PV202200094630

PATIENT
  Age: 42 Year
  Sex: Female

DRUGS (10)
  1. PALBOCICLIB [Suspect]
     Active Substance: PALBOCICLIB
     Indication: Breast cancer metastatic
     Dosage: 125 MG, OD DAILY D21, 7 DAYS OFF
     Route: 048
     Dates: start: 20220112
  2. PALBOCICLIB [Suspect]
     Active Substance: PALBOCICLIB
     Dosage: 100 MG, CYCLIC (OD, ONCE A DAY D1-21, 7 DAY OFF)
     Route: 048
  3. LETROZOLE [Concomitant]
     Active Substance: LETROZOLE
     Dosage: UNK
     Dates: start: 20220112
  4. LETROZOLE [Concomitant]
     Active Substance: LETROZOLE
     Dosage: 2.5 MG, OD
  5. LEUPROLIDE ACETATE [Concomitant]
     Active Substance: LEUPROLIDE ACETATE
     Dosage: UNK
  6. LEUPROLIDE ACETATE [Concomitant]
     Active Substance: LEUPROLIDE ACETATE
     Dosage: 11.25 MG, ONCE IN 3 MONTHS
     Route: 030
  7. ULTRACET [Concomitant]
     Active Substance: ACETAMINOPHEN\TRAMADOL HYDROCHLORIDE
     Dosage: 1 TABLET SOS, AS NEEDED
  8. ZOMETA [Concomitant]
     Active Substance: ZOLEDRONIC ACID
     Dosage: 4MG IN 100 ML NS, SLOW IV OVER 20 MINUTES (ONCE IN 3 MONTHS)
     Route: 042
  9. SHELCAL [CALCIUM CARBONATE;COLECALCIFEROL] [Concomitant]
     Dosage: 500 MG, 2X/DAY
  10. MAXCAL D [Concomitant]
     Dosage: 500 MG, 1 BD

REACTIONS (25)
  - Femoral neck fracture [Unknown]
  - Haemoglobin decreased [Unknown]
  - White blood cell count decreased [Unknown]
  - Neutrophil count decreased [Unknown]
  - Alanine aminotransferase increased [Unknown]
  - Blood alkaline phosphatase increased [Unknown]
  - Platelet count decreased [Unknown]
  - Neutrophil count increased [Unknown]
  - Haematocrit decreased [Unknown]
  - Red blood cell count decreased [Unknown]
  - Mean cell haemoglobin increased [Unknown]
  - Red cell distribution width increased [Unknown]
  - Lymphadenitis [Unknown]
  - Neoplasm progression [Unknown]
  - Monocyte count decreased [Unknown]
  - Basophil count decreased [Unknown]
  - Mean cell volume increased [Unknown]
  - Lymphocyte percentage increased [Unknown]
  - Eosinophil percentage decreased [Unknown]
  - Lymphocyte count decreased [Unknown]
  - Bilirubin conjugated increased [Unknown]
  - Aspartate aminotransferase increased [Unknown]
  - Gamma-glutamyltransferase increased [Unknown]
  - Off label use [Unknown]
  - Liver disorder [Unknown]

NARRATIVE: CASE EVENT DATE: 20220112
